FAERS Safety Report 5647786-6 (Version None)
Quarter: 2008Q1

REPORT INFORMATION
  Report Type: 
  Country: None (occurrence: None)
  Receive Date: 20080303
  Receipt Date: 20080220
  Transmission Date: 20080703
  Serious: Yes (Hospitalization)
  Sender: FDA-Public Use
  Company Number: DK-PFIZER INC-2008016827

PATIENT
  Age: 61 Year
  Sex: Male
  Weight: 83 kg

DRUGS (5)
  1. GENOTROPIN [Suspect]
     Indication: HYPOPITUITARISM
     Route: 058
  2. COZAAR [Concomitant]
     Route: 048
  3. HYDROCORTISONE [Concomitant]
     Route: 048
  4. TESTOSTERONE [Concomitant]
  5. LEVOTHYROXINE SODIUM [Concomitant]
     Route: 048

REACTIONS (3)
  - CHOLECYSTECTOMY [None]
  - DISCOMFORT [None]
  - NAUSEA [None]
